FAERS Safety Report 5079543-6 (Version None)
Quarter: 2006Q3

REPORT INFORMATION
  Report Type: 
  Country: None (occurrence: None)
  Receive Date: 20060814
  Receipt Date: 20060606
  Transmission Date: 20061208
  Serious: Yes (Other)
  Sender: FDA-Public Use
  Company Number: US-BRISTOL-MYERS SQUIBB COMPANY-13402425

PATIENT
  Age: 55 Year
  Sex: Female
  Weight: 109 kg

DRUGS (6)
  1. GLUCOVANCE [Suspect]
     Indication: DIABETES MELLITUS NON-INSULIN-DEPENDENT
     Dosage: DOSAGE FORM = 2.5MG/500MG TABLET
     Route: 048
  2. ZOCOR [Concomitant]
     Dates: end: 20060501
  3. PREVACID [Concomitant]
  4. MICARDIS HCT [Concomitant]
     Dosage: DOSAGE FORM = 80 MG/12.5 MG PER TABLET
  5. FUROSEMIDE [Concomitant]
  6. BETAMETHASONE + CLOTRIMAZOLE [Concomitant]
     Route: 061
     Dates: start: 20060513

REACTIONS (1)
  - HYPERGLYCAEMIA [None]
